FAERS Safety Report 6821753-9 (Version None)
Quarter: 2010Q3

REPORT INFORMATION
  Report Type: 
  Country: None (occurrence: None)
  Receive Date: 20100702
  Receipt Date: 20100623
  Transmission Date: 20110219
  Serious: Yes (Hospitalization)
  Sender: FDA-Public Use
  Company Number: TCI2010A00827

PATIENT
  Age: 51 Year
  Sex: Male

DRUGS (5)
  1. ACTOS [Suspect]
     Indication: TYPE 2 DIABETES MELLITUS
     Dosage: 30 MG (30 MG, 1 D), PER ORAL
     Route: 048
     Dates: start: 20090323, end: 20090605
  2. ANTIHYPERTENSIVES [Concomitant]
  3. HMG COA REDUCTASE INHIBITORS [Concomitant]
  4. AMARYL [Concomitant]
  5. GLUCOBAY [Concomitant]

REACTIONS (3)
  - ACUTE MYOCARDIAL INFARCTION [None]
  - CARDIOMEGALY [None]
  - TACHYCARDIA [None]
